FAERS Safety Report 5208516-5 (Version None)
Quarter: 2006Q4

REPORT INFORMATION
  Report Type: 
  Country: None (occurrence: None)
  Receive Date: 20061027
  Receipt Date: 20060227
  Transmission Date: 20070319
  Serious: Yes (Other)
  Sender: FDA-Public Use
  Company Number: HQWYE581128JUL05

PATIENT
  Age: 55 Year
  Sex: Female
  Weight: 56.3 kg

DRUGS (2)
  1. PREMARIN [Suspect]
     Indication: HORMONE REPLACEMENT THERAPY
     Dosage: 0.625MG, FREQUENCY UNKNOWN, ORAL
     Route: 048
     Dates: start: 19940214, end: 19970901
  2. PROVERA [Suspect]

REACTIONS (1)
  - BREAST CANCER [None]
